FAERS Safety Report 4971665-0 (Version None)
Quarter: 2006Q2

REPORT INFORMATION
  Report Type: 
  Country: None (occurrence: None)
  Receive Date: 20060413
  Receipt Date: 20060403
  Transmission Date: 20061013
  Serious: Yes (Death, Other)
  Sender: FDA-Public Use
  Company Number: US-BRISTOL-MYERS SQUIBB COMPANY-13334909

PATIENT
  Age: 71 Year
  Sex: Male

DRUGS (1)
  1. COUMADIN [Suspect]
     Indication: THROMBOSIS
     Dates: end: 20060327

REACTIONS (2)
  - DEATH [None]
  - HEPATIC FUNCTION ABNORMAL [None]
